FAERS Safety Report 5480394-9 (Version None)
Quarter: 2007Q4

REPORT INFORMATION
  Report Type: 
  Country: None (occurrence: None)
  Receive Date: 20071004
  Receipt Date: 20071004
  Transmission Date: 20080405
  Serious: Yes (Hospitalization)
  Sender: FDA-Public Use
  Company Number: None

PATIENT
  Age: 49 Year
  Sex: Female
  Weight: 102.5129 kg

DRUGS (1)
  1. TOPAMAX [Suspect]
     Indication: TRIGEMINAL NEURALGIA
     Dosage: 25 MG  3X DAY  PO
     Route: 048
     Dates: start: 20070822, end: 20070919

REACTIONS (9)
  - ACTIVITIES OF DAILY LIVING IMPAIRED [None]
  - CONTRAST MEDIA REACTION [None]
  - DECREASED APPETITE [None]
  - DYSSTASIA [None]
  - EMOTIONAL DISORDER [None]
  - FATIGUE [None]
  - HEMIPARESIS [None]
  - SPEECH DISORDER [None]
  - TREMOR [None]
